FAERS Safety Report 23627264 (Version 1)
Quarter: 2024Q1

REPORT INFORMATION
  Report Type: Report from Study
  Country: US (occurrence: US)
  Receive Date: 20240313
  Receipt Date: 20240313
  Transmission Date: 20240410
  Serious: No
  Sender: FDA-Public Use
  Company Number: US-SPRINGWORKS THERAPEUTICS-SW-001297

PATIENT
  Age: 39 Year
  Sex: Female

DRUGS (1)
  1. NIROGACESTAT [Suspect]
     Active Substance: NIROGACESTAT
     Indication: Product used for unknown indication
     Dosage: 150.0 MILLIGRAM, BID
     Route: 048

REACTIONS (2)
  - Photopsia [Unknown]
  - Product use issue [Unknown]

NARRATIVE: CASE EVENT DATE: 20240207
